FAERS Safety Report 9166380 (Version 1)
Quarter: 2013Q1

REPORT INFORMATION
  Report Type: Report from Study
  Country: DE (occurrence: DE)
  Receive Date: 20130315
  Receipt Date: 20130315
  Transmission Date: 20140127
  Serious: Yes (Other)
  Sender: FDA-Public Use
  Company Number: PHHY2013DE025277

PATIENT
  Sex: Female

DRUGS (4)
  1. FTY 720 [Suspect]
     Indication: MULTIPLE SCLEROSIS
     Dosage: 0.5 MG, QD
     Route: 048
     Dates: start: 20110920
  2. WOBENZYM [Concomitant]
     Dosage: 600 UKN, QD
     Route: 048
     Dates: start: 20120321
  3. VITAMIN D [Concomitant]
     Dosage: 1000 IU, QD
     Route: 048
     Dates: start: 20120328
  4. TETRAZEPAM [Concomitant]
     Dosage: 50 UKN, QD
     Route: 048
     Dates: start: 20120822

REACTIONS (1)
  - Glaucoma [Not Recovered/Not Resolved]
